FAERS Safety Report 6864783-3 (Version None)
Quarter: 2010Q3

REPORT INFORMATION
  Report Type: 
  Country: None (occurrence: None)
  Receive Date: 20100721
  Receipt Date: 20080418
  Transmission Date: 20110219
  Serious: No
  Sender: FDA-Public Use
  Company Number: US-PFIZER INC-2008031790

PATIENT
  Sex: Male
  Weight: 106.6 kg

DRUGS (13)
  1. CHANTIX [Suspect]
     Indication: SMOKING CESSATION THERAPY
     Route: 048
     Dates: start: 20080406
  2. FLOVENT [Concomitant]
  3. MONTELUKAST SODIUM [Concomitant]
  4. RANITIDINE [Concomitant]
  5. PROTONIX [Concomitant]
  6. ALBUTEROL [Concomitant]
  7. RISPERDAL [Concomitant]
  8. FLONASE [Concomitant]
  9. WELLBUTRIN XL [Concomitant]
  10. OXYCODONE [Concomitant]
  11. ZANAFLEX [Concomitant]
  12. KLONOPIN [Concomitant]
  13. AMBIEN [Concomitant]

REACTIONS (4)
  - ABNORMAL DREAMS [None]
  - FATIGUE [None]
  - SLEEP DISORDER [None]
  - SOMNOLENCE [None]
